FAERS Safety Report 20161343 (Version 1)
Quarter: 2021Q4

REPORT INFORMATION
  Report Type: Spontaneous
  Country: US (occurrence: US)
  Receive Date: 20211208
  Receipt Date: 20211208
  Transmission Date: 20220303
  Serious: Yes (Death, Other)
  Sender: FDA-Public Use
  Company Number: US-TAKEDA-2017TUS006074

PATIENT
  Sex: Female

DRUGS (34)
  1. LANSOPRAZOLE [Suspect]
     Active Substance: LANSOPRAZOLE
     Indication: Gastrooesophageal reflux disease
     Dosage: 30 MG
     Route: 048
     Dates: start: 2011, end: 2012
  2. PREVACID [Suspect]
     Active Substance: LANSOPRAZOLE
     Indication: Gastrooesophageal reflux disease
     Dosage: 30 MG
     Route: 048
     Dates: start: 2001, end: 2009
  3. PROTONIX [Suspect]
     Active Substance: PANTOPRAZOLE SODIUM
     Dosage: UNK
     Route: 048
  4. DEXILANT [Suspect]
     Active Substance: DEXLANSOPRAZOLE
     Indication: Gastrooesophageal reflux disease
     Dosage: UNK
     Route: 048
     Dates: start: 2012, end: 2014
  5. DEXILANT [Suspect]
     Active Substance: DEXLANSOPRAZOLE
     Dosage: 60 MG
     Route: 048
     Dates: start: 201202, end: 201505
  6. PRILOSEC [Suspect]
     Active Substance: OMEPRAZOLE MAGNESIUM
     Indication: Gastrooesophageal reflux disease
     Dosage: 20 MG
     Route: 048
     Dates: start: 2009, end: 2011
  7. OMEPRAZOLE [Suspect]
     Active Substance: OMEPRAZOLE
     Indication: Gastrooesophageal reflux disease
     Dosage: 20 MG
     Route: 048
     Dates: start: 2015
  8. OMEPRAZOLE [Suspect]
     Active Substance: OMEPRAZOLE
     Dosage: 20 MG
     Route: 048
     Dates: start: 2009, end: 2011
  9. ASPIRIN [Concomitant]
     Active Substance: ASPIRIN
     Indication: Cardiac disorder
     Dosage: UNK
  10. ATENOLOL [Concomitant]
     Active Substance: ATENOLOL
     Indication: Angina pectoris
     Dosage: UNK
     Dates: start: 2006, end: 2016
  11. CHLORDIAZEPOXIDE HYDROCHLORIDE\CLIDINIUM BROMIDE [Concomitant]
     Active Substance: CHLORDIAZEPOXIDE HYDROCHLORIDE\CLIDINIUM BROMIDE
     Indication: Gastrointestinal disorder
     Dosage: UNK
     Dates: start: 2013, end: 2016
  12. COENZYME Q10 [Concomitant]
     Active Substance: DIETARY SUPPLEMENT\UBIDECARENONE
     Dosage: UNK
  13. CYCLOBENZAPRINE [Concomitant]
     Active Substance: CYCLOBENZAPRINE
     Indication: Muscle spasms
     Dosage: UNK
     Dates: start: 2016
  14. DENAVIR [Concomitant]
     Active Substance: PENCICLOVIR
     Indication: Oral herpes
     Dosage: UNK
     Dates: start: 2001, end: 2009
  15. FLONASE [Concomitant]
     Active Substance: FLUTICASONE PROPIONATE
     Indication: Hypersensitivity
     Dosage: UNK
     Dates: start: 2002, end: 2005
  16. HYDROCHLOROTHIAZIDE [Concomitant]
     Active Substance: HYDROCHLOROTHIAZIDE
     Indication: Blood pressure abnormal
     Dosage: UNK
     Dates: start: 2013, end: 2016
  17. HYDROCHLOROTHIAZIDE [Concomitant]
     Active Substance: HYDROCHLOROTHIAZIDE
     Indication: Fluid retention
  18. LEVOCETIRIZINE [Concomitant]
     Active Substance: LEVOCETIRIZINE
     Indication: Antiallergic therapy
     Dosage: UNK
  19. LEVOTHYROXINE [Concomitant]
     Active Substance: LEVOTHYROXINE
     Indication: Hypothyroidism
     Dosage: UNK
     Dates: start: 2013, end: 2016
  20. LIPITOR [Concomitant]
     Active Substance: ATORVASTATIN CALCIUM
     Indication: Blood cholesterol abnormal
     Dosage: UNK
     Dates: start: 2016
  21. LOSARTAN [Concomitant]
     Active Substance: LOSARTAN
     Indication: Hypertension
     Dosage: UNK
     Dates: start: 2014, end: 2016
  22. MOBIC [Concomitant]
     Active Substance: MELOXICAM
     Indication: Osteoarthritis
     Dosage: UNK
     Dates: start: 2001, end: 2011
  23. NITROGLYCERIN [Concomitant]
     Active Substance: NITROGLYCERIN
     Indication: Coronary artery disease
     Dosage: UNK
  24. NORCO [Concomitant]
     Active Substance: ACETAMINOPHEN\HYDROCODONE BITARTRATE
     Indication: Pain
     Dosage: UNK
  25. PENNSAID [Concomitant]
     Active Substance: DICLOFENAC SODIUM
     Indication: Arthritis
     Dosage: UNK
     Dates: start: 2011
  26. PROAIR HFA [Concomitant]
     Active Substance: ALBUTEROL SULFATE
     Indication: Asthma
     Dosage: UNK
     Dates: start: 2014
  27. PROMETHAZINE [Concomitant]
     Active Substance: PROMETHAZINE HYDROCHLORIDE
     Indication: Antiallergic therapy
     Dosage: UNK
     Dates: start: 2014, end: 2016
  28. REGLAN [Concomitant]
     Active Substance: METOCLOPRAMIDE HYDROCHLORIDE
     Indication: Gastrooesophageal reflux disease
     Dosage: UNK
     Dates: start: 2016
  29. SINGULAIR [Concomitant]
     Active Substance: MONTELUKAST SODIUM
     Indication: Inflammation
     Dosage: UNK
     Dates: start: 2004, end: 2012
  30. SUCRALFATE [Concomitant]
     Active Substance: SUCRALFATE
     Indication: Ulcer
     Dosage: UNK
     Dates: start: 2012, end: 2014
  31. TOPAMAX [Concomitant]
     Active Substance: TOPIRAMATE
     Indication: Neuralgia
     Dosage: UNK
  32. TRANSDERM SCOP [Concomitant]
     Active Substance: SCOPOLAMINE
     Indication: Nausea
     Dosage: UNK
     Dates: start: 2004, end: 2012
  33. TRAZODONE [Concomitant]
     Active Substance: TRAZODONE HYDROCHLORIDE
     Indication: Depression
     Dosage: UNK
     Dates: start: 2004, end: 2016
  34. VALACYCLOVIR [Concomitant]
     Active Substance: VALACYCLOVIR HYDROCHLORIDE
     Indication: Oral herpes
     Dosage: UNK
     Dates: start: 2016

REACTIONS (5)
  - Acute kidney injury [Fatal]
  - Cardiovascular disorder [Fatal]
  - Hypertension [Fatal]
  - Chronic kidney disease [Fatal]
  - Atrial fibrillation [Fatal]

NARRATIVE: CASE EVENT DATE: 20060601
